FAERS Safety Report 25624258 (Version 1)
Quarter: 2025Q3

REPORT INFORMATION
  Report Type: Spontaneous
  Country: US (occurrence: US)
  Receive Date: 20250730
  Receipt Date: 20250730
  Transmission Date: 20251020
  Serious: Yes (Other)
  Sender: APELLIS PHARMACEUTICALS
  Company Number: US-APELLIS-2025-APL-0001418

PATIENT

DRUGS (3)
  1. SYFOVRE [Suspect]
     Active Substance: PEGCETACOPLAN
     Indication: Dry age-related macular degeneration
     Dates: start: 20240410
  2. SYFOVRE [Suspect]
     Active Substance: PEGCETACOPLAN
     Dates: start: 20240529
  3. SYFOVRE [Suspect]
     Active Substance: PEGCETACOPLAN
     Dates: start: 20240809

REACTIONS (13)
  - Blindness [Not Recovered/Not Resolved]
  - Blindness [Not Recovered/Not Resolved]
  - Dry age-related macular degeneration [Not Recovered/Not Resolved]
  - Disease progression [Not Recovered/Not Resolved]
  - Condition aggravated [Unknown]
  - Injection related reaction [Unknown]
  - Psychomotor retardation [Unknown]
  - Major depression [Unknown]
  - Fatigue [Unknown]
  - Nausea [Unknown]
  - Dizziness [Unknown]
  - Influenza like illness [Unknown]
  - Malaise [Unknown]
